FAERS Safety Report 8421929-3 (Version None)
Quarter: 2012Q2

REPORT INFORMATION
  Report Type: 
  Country: None (occurrence: None)
  Receive Date: 20120605
  Receipt Date: 20120605
  Transmission Date: 20120825
  Serious: Yes (Disabling)
  Sender: FDA-Public Use
  Company Number: None

PATIENT
  Age: 75 Year
  Sex: Male

DRUGS (1)
  1. TEMAZEPAM [Suspect]
     Indication: INSOMNIA
     Dosage: 1 - BEDTIME AS NEEDED
     Dates: start: 20120207, end: 20120310

REACTIONS (2)
  - CEREBROVASCULAR ACCIDENT [None]
  - HYPERSOMNIA [None]
